FAERS Safety Report 4758905-8 (Version None)
Quarter: 2005Q3

REPORT INFORMATION
  Report Type: 
  Country: None (occurrence: None)
  Receive Date: 20050831
  Receipt Date: 20050815
  Transmission Date: 20060218
  Serious: Yes (Hospitalization)
  Sender: FDA-Public Use
  Company Number: 2005S1006084

PATIENT
  Age: 41 Year
  Sex: Female
  Weight: 56.6996 kg

DRUGS (10)
  1. FENTANYL [Suspect]
     Indication: PAIN
     Dosage: 25 MCG/HR; QOD; TDER
     Route: 062
     Dates: start: 20050321, end: 20050605
  2. FENTANYL [Suspect]
  3. FENTANYL [Suspect]
     Indication: PAIN
     Dosage: 50 MCG/HR; Q3D; TDER
     Route: 062
     Dates: start: 20050513, end: 20050605
  4. FLUTICASONE PROPIONATE [Concomitant]
  5. SALMETEROL XINAFOATE [Concomitant]
  6. GLATIRAMER ACETATE [Concomitant]
  7. MODAFINIL [Concomitant]
  8. FLUOXETINE HCL [Concomitant]
  9. PARACETAMOL/OXYCODONE HYDROCHORIDE [Concomitant]
  10. ALBUTEROL SULFATE HFA [Concomitant]

REACTIONS (7)
  - CHILLS [None]
  - COLD SWEAT [None]
  - DRUG INEFFECTIVE [None]
  - DRUG WITHDRAWAL SYNDROME [None]
  - MUSCLE SPASMS [None]
  - PAIN [None]
  - PHOTOSENSITIVITY REACTION [None]
